FAERS Safety Report 10743014 (Version 1)
Quarter: 2015Q1

REPORT INFORMATION
  Report Type: Spontaneous
  Country: US (occurrence: US)
  Receive Date: 20150127
  Receipt Date: 20150127
  Transmission Date: 20150721
  Serious: No
  Sender: FDA-Public Use
  Company Number: US-GLAXOSMITHKLINE-US2014GSK048504

PATIENT
  Sex: Male
  Weight: 79.82 kg

DRUGS (11)
  1. AMOX TR-K CLV TABLET [Concomitant]
  2. PROCHLORPERAZINE TABLET [Concomitant]
  3. CHERATUSSIN AC [Concomitant]
     Active Substance: CODEINE PHOSPHATE\GUAIFENESIN
  4. CHONDROITIN SULFATE (BOVINE)\GLUCOSAMINE SULFATE [Concomitant]
     Active Substance: CHONDROITIN SULFATE (BOVINE)\GLUCOSAMINE SULFATE
  5. VITAMIN C [Concomitant]
     Active Substance: ASCORBIC ACID
  6. ANUCORT-HC SUPPOSITORIES [Concomitant]
  7. VITAMIN D3 [Concomitant]
     Active Substance: CHOLECALCIFEROL
  8. HYDROCORTISONE CREAM [Concomitant]
     Active Substance: HYDROCORTISONE
  9. MEKINIST [Concomitant]
     Active Substance: TRAMETINIB DIMETHYL SULFOXIDE
     Dosage: 2 MG, U
  10. TAFINLAR [Suspect]
     Active Substance: DABRAFENIB MESYLATE
     Indication: MALIGNANT MELANOMA
     Dosage: 150 MG, BID
     Route: 048
     Dates: start: 201403
  11. HYDROCODONE BITARTRATE AND ACETAMINOPHEN [Concomitant]
     Active Substance: ACETAMINOPHEN\HYDROCODONE BITARTRATE

REACTIONS (3)
  - Pyrexia [Recovered/Resolved]
  - Chills [Recovered/Resolved]
  - Emergency care examination [Recovered/Resolved]
